FAERS Safety Report 23836591 (Version 5)
Quarter: 2024Q3

REPORT INFORMATION
  Report Type: Report from Study
  Country: CA (occurrence: CA)
  Receive Date: 20240509
  Receipt Date: 20240911
  Transmission Date: 20241016
  Serious: Yes (Hospitalization, Other)
  Sender: ROCHE
  Company Number: CA-ROCHE-3559738

PATIENT
  Sex: Male

DRUGS (1)
  1. OCREVUS [Suspect]
     Active Substance: OCRELIZUMAB
     Indication: Relapsing-remitting multiple sclerosis
     Dosage: 300 MG AT DAY 0 AND 14, THEN 600 MG EVERY 6 MONTHS
     Route: 042
     Dates: start: 20190827

REACTIONS (6)
  - Cystitis [Recovered/Resolved]
  - Kidney infection [Not Recovered/Not Resolved]
  - Haematological infection [Recovered/Resolved]
  - Muscular weakness [Not Recovered/Not Resolved]
  - Bladder hypertrophy [Recovering/Resolving]
  - Renal failure [Unknown]
